FAERS Safety Report 11838764 (Version 2)
Quarter: 2016Q2

REPORT INFORMATION
  Report Type: Spontaneous
  Country: US (occurrence: US)
  Receive Date: 20151215
  Receipt Date: 20160427
  Transmission Date: 20160815
  Serious: No
  Sender: FDA-Public Use
  Company Number: US-MYLANLABS-2015M1008804

PATIENT
  Sex: Female

DRUGS (3)
  1. DIPHENOXYLATE HYDROCHLORIDE AND ATROPINE SULFATE TABLETS, USP [Suspect]
     Active Substance: ATROPINE\DIPHENOXYLATE HYDROCHLORIDE
     Dosage: 2.5 MG,/0.025MG UNK
     Route: 048
  2. LORAZEPAM TABLETS, USP [Suspect]
     Active Substance: LORAZEPAM
     Dosage: 0.5 MG, UNK
     Route: 048
  3. MYRBETRIQ [Concomitant]
     Active Substance: MIRABEGRON
     Dosage: UNK

REACTIONS (2)
  - Wrong drug administered [Recovered/Resolved]
  - Insomnia [Not Recovered/Not Resolved]
